FAERS Safety Report 15429394 (Version 1)
Quarter: 2018Q4

REPORT INFORMATION
  Report Type: Spontaneous
  Country: DE (occurrence: DE)
  Receive Date: 20180926
  Receipt Date: 20180926
  Transmission Date: 20190204
  Serious: Yes (Other)
  Sender: FDA-Public Use
  Company Number: PHHY2018DE104655

PATIENT
  Age: 1 Day
  Sex: Male
  Weight: 3.33 kg

DRUGS (5)
  1. OXYTOCIN. [Concomitant]
     Active Substance: OXYTOCIN
     Indication: FOETAL EXPOSURE DURING PREGNANCY
     Route: 064
  2. HYPNOREX - SLOW RELEASE [Suspect]
     Active Substance: LITHIUM CARBONATE
     Indication: FOETAL EXPOSURE DURING PREGNANCY
     Dosage: 1400 MG, QD (INITALLY 1000MG.D, INCREASED UPTO 1400 MG/D UPTO 7 SINGLE DOSES/DAY)
     Route: 064
  3. L-THYROXIN HENNING [Concomitant]
     Active Substance: LEVOTHYROXINE SODIUM
     Indication: FOETAL EXPOSURE DURING PREGNANCY
     Dosage: 200 UG, QD
     Route: 064
     Dates: start: 20170626
  4. QUETIAPINE. [Suspect]
     Active Substance: QUETIAPINE
     Indication: FOETAL EXPOSURE DURING PREGNANCY
     Dosage: 50 MG, QD
     Route: 064
     Dates: start: 20170626
  5. FEMIBION 1 [Concomitant]
     Indication: FOETAL EXPOSURE DURING PREGNANCY
     Dosage: 0.8 MG, QD (0.4-0.8 MG/D)
     Route: 064

REACTIONS (5)
  - Respiratory disorder neonatal [Recovered/Resolved]
  - Hypoglycaemia neonatal [Recovered/Resolved]
  - Patent ductus arteriosus [Unknown]
  - Selective eating disorder [Recovered/Resolved]
  - Convulsion neonatal [Recovered/Resolved]

NARRATIVE: CASE EVENT DATE: 20180411
